FAERS Safety Report 7935987 (Version 2)
Quarter: 2013Q4

REPORT INFORMATION
  Report Type: Report from Study
  Country: US (occurrence: US)
  Receive Date: 20110509
  Receipt Date: 20131002
  Transmission Date: 20140711
  Serious: Yes (Other)
  Sender: FDA-Public Use
  Company Number: US-ALEXION-A201000897

PATIENT
  Age: 8 Year
  Sex: Female

DRUGS (3)
  1. SOLIRIS [Suspect]
     Indication: PAROXYSMAL NOCTURNAL HAEMOGLOBINURIA
     Dosage: UNK
     Route: 042
     Dates: start: 20100525
  2. SOLIRIS [Suspect]
     Indication: OFF LABEL USE
  3. PROVERA                            /00115201/ [Suspect]
     Dosage: UNK
     Dates: end: 201007

REACTIONS (4)
  - Menorrhagia [Unknown]
  - Uterine enlargement [Unknown]
  - Contusion [Unknown]
  - Fatigue [Not Recovered/Not Resolved]
